FAERS Safety Report 6927728-3 (Version None)
Quarter: 2010Q3

REPORT INFORMATION
  Report Type: 
  Country: None (occurrence: None)
  Receive Date: 20100817
  Receipt Date: 20100722
  Transmission Date: 20110219
  Serious: Yes (Other)
  Sender: FDA-Public Use
  Company Number: DE-BAYER-201032293GPV

PATIENT
  Age: 78 Year
  Sex: Female

DRUGS (1)
  1. NEXAVAR [Suspect]
     Indication: HEPATIC NEOPLASM MALIGNANT
     Route: 048
     Dates: start: 20081001

REACTIONS (5)
  - ARTHRALGIA [None]
  - ERYTHEMA [None]
  - HYPERTHERMIA [None]
  - JOINT SWELLING [None]
  - RHEUMATOID ARTHRITIS [None]
